FAERS Safety Report 5207622-9 (Version None)
Quarter: 2007Q1

REPORT INFORMATION
  Report Type: 
  Country: None (occurrence: None)
  Receive Date: 20070112
  Receipt Date: 20061221
  Transmission Date: 20070707
  Serious: Yes (Other)
  Sender: FDA-Public Use
  Company Number: US-PFIZER INC-2005122917

PATIENT
  Age: 49 Year
  Sex: Female

DRUGS (1)
  1. BEXTRA [Suspect]

REACTIONS (2)
  - BLINDNESS [None]
  - OCULAR VASCULAR DISORDER [None]
